FAERS Safety Report 24219413 (Version 1)
Quarter: 2024Q3

REPORT INFORMATION
  Report Type: Spontaneous
  Country: US (occurrence: US)
  Receive Date: 20240816
  Receipt Date: 20240816
  Transmission Date: 20241017
  Serious: No
  Sender: SANOFI AVENTIS
  Company Number: US-SA-SAC20240812000161

PATIENT
  Age: 62 Year
  Sex: Female

DRUGS (1)
  1. DUPIXENT [Suspect]
     Active Substance: DUPILUMAB
     Indication: Asthma
     Dosage: 300 MG, QOW
     Route: 058
     Dates: start: 20240710

REACTIONS (8)
  - Paraesthesia oral [Unknown]
  - Oral mucosal blistering [Unknown]
  - Peripheral swelling [Unknown]
  - Weight increased [Unknown]
  - Vision blurred [Unknown]
  - Pruritus [Unknown]
  - Arthralgia [Unknown]
  - Therapeutic response unexpected [Unknown]

NARRATIVE: CASE EVENT DATE: 20240101
